FAERS Safety Report 4352767-9 (Version None)
Quarter: 2004Q2

REPORT INFORMATION
  Report Type: 
  Country: None (occurrence: None)
  Receive Date: 20040504
  Receipt Date: 20040426
  Transmission Date: 20050107
  Serious: Yes (Hospitalization)
  Sender: FDA-Public Use
  Company Number: JP-ROCHE-365495

PATIENT
  Age: 74 Year
  Sex: Male

DRUGS (1)
  1. PANALDINE [Suspect]
     Indication: ATRIAL FIBRILLATION
     Dosage: DOSE RECEIVED EITHER 200MG PER DAY OR 300MG PER DAY
     Route: 048
     Dates: start: 19980615

REACTIONS (2)
  - AORTIC ANEURYSM RUPTURE [None]
  - AORTIC RUPTURE [None]
